FAERS Safety Report 4332564-0 (Version None)
Quarter: 2004Q1

REPORT INFORMATION
  Report Type: 
  Country: None (occurrence: None)
  Receive Date: 20040330
  Receipt Date: 20040316
  Transmission Date: 20041129
  Serious: Yes (Death, Other)
  Sender: FDA-Public Use
  Company Number: NL-JNJFOC-20040305552

PATIENT
  Age: 9 Year
  Sex: Female

DRUGS (3)
  1. INFLIXIMAB (INFLIXIMAB, RECOMBINANT) LYOPHILIZED POWDER [Suspect]
     Indication: JUVENILE ARTHRITIS
     Dosage: 20 MG/KG, INTRAVENOUS
     Route: 042
     Dates: start: 20020101
  2. ETANERCEPT (ETANERCEPT) [Suspect]
     Indication: JUVENILE ARTHRITIS
     Dosage: 0.4 MG/KG; 0.8 MG/KG
     Route: 042
  3. METHOTREXATE [Concomitant]

REACTIONS (12)
  - CARDIAC ARREST [None]
  - CARDIOPULMONARY FAILURE [None]
  - CATHETER RELATED INFECTION [None]
  - CUTANEOUS TUBERCULOSIS [None]
  - DIFFUSE ALVEOLAR DAMAGE [None]
  - DRUG INEFFECTIVE [None]
  - ENTEROBACTER INFECTION [None]
  - ESCHERICHIA INFECTION [None]
  - LUNG INFECTION [None]
  - OPPORTUNISTIC INFECTION [None]
  - PNEUMONIA LIPOID [None]
  - RESPIRATORY FAILURE [None]
